FAERS Safety Report 8976040 (Version 3)
Quarter: 2013Q2

REPORT INFORMATION
  Report Type: Report from Study
  Country: JP (occurrence: JP)
  Receive Date: 20121220
  Receipt Date: 20130603
  Transmission Date: 20140414
  Serious: Yes (Life-Threatening, Hospitalization)
  Sender: FDA-Public Use
  Company Number: JP-ROCHE-1168647

PATIENT
  Age: 62 Year
  Sex: Male

DRUGS (14)
  1. METHOXY POLYETHYLENE GLYCOL-EPOETIN BETA [Suspect]
     Indication: NEPHROGENIC ANAEMIA
     Route: 042
     Dates: start: 20110930, end: 20111209
  2. METHOXY POLYETHYLENE GLYCOL-EPOETIN BETA [Suspect]
     Indication: NEPHROGENIC ANAEMIA
     Route: 042
     Dates: start: 20120113, end: 20120413
  3. METHOXY POLYETHYLENE GLYCOL-EPOETIN BETA [Suspect]
     Indication: NEPHROGENIC ANAEMIA
     Route: 042
     Dates: start: 20120511
  4. OXAROL [Concomitant]
     Dosage: DIALYSIS DAY
     Route: 042
  5. MARZULENE [Concomitant]
     Route: 048
  6. COMESGEN [Concomitant]
     Route: 048
  7. ISOSORBIDE DINITRATE [Concomitant]
     Route: 062
  8. FOSRENOL [Concomitant]
     Route: 048
  9. TOWARAT-L [Concomitant]
     Route: 048
  10. TAKEPRON [Concomitant]
     Route: 048
  11. ALLOPURINOL [Concomitant]
     Route: 048
  12. AMOBAN [Concomitant]
     Dosage: AT THE SLEEP LOSS
     Route: 048
  13. SENNOSIDE [Concomitant]
     Dosage: AT THE SLEEP LOSS
     Route: 048
  14. SHAKUYAKUKANZOTO [Concomitant]
     Dosage: PRE-DIALYSIS
     Route: 048

REACTIONS (3)
  - Aortic dissection [Recovering/Resolving]
  - Fall [Unknown]
  - Contusion [Recovered/Resolved with Sequelae]
